FAERS Safety Report 14861840 (Version 1)
Quarter: 2018Q2

REPORT INFORMATION
  Report Type: Spontaneous
  Country: GR (occurrence: GR)
  Receive Date: 20180508
  Receipt Date: 20180508
  Transmission Date: 20180711
  Serious: Yes (Other)
  Sender: FDA-Public Use
  Company Number: GR-BRISTOL-MYERS SQUIBB COMPANY-BMS-2018-037803

PATIENT
  Age: 55 Year
  Sex: Female

DRUGS (7)
  1. HYDROCORTISONE. [Concomitant]
     Active Substance: HYDROCORTISONE
     Indication: PRODUCT SUBSTITUTION
     Dosage: UNK MG, UNK
     Route: 048
  2. EVOLOCUMAB [Concomitant]
     Active Substance: EVOLOCUMAB
     Indication: HYPERLIPIDAEMIA
     Dosage: 140 MG, Q2WK
     Route: 058
  3. MITOTANE [Interacting]
     Active Substance: MITOTANE
     Indication: PRODUCT USED FOR UNKNOWN INDICATION
     Dosage: 4.5 G, QD
     Route: 065
  4. EZETIMIBE;ROSUVASTATIN [Concomitant]
     Indication: HYPERLIPIDAEMIA
     Dosage: 1 DF, QD
     Route: 048
  5. MITOTANE [Suspect]
     Active Substance: MITOTANE
     Indication: ADRENOCORTICAL CARCINOMA
     Route: 065
  6. MITOTANE [Interacting]
     Active Substance: MITOTANE
     Indication: ADJUVANT THERAPY
     Dosage: 2 G, QD
     Route: 065
  7. SIMVASTATIN. [Interacting]
     Active Substance: SIMVASTATIN
     Indication: HYPERLIPIDAEMIA
     Dosage: 40 MG, UNK
     Route: 065

REACTIONS (6)
  - Metastases to liver [Unknown]
  - Recurrent cancer [Unknown]
  - Hepatotoxicity [Unknown]
  - Hypercholesterolaemia [Unknown]
  - Product use in unapproved indication [Unknown]
  - Drug interaction [Unknown]
